FAERS Safety Report 6154369-0 (Version None)
Quarter: 2009Q2

REPORT INFORMATION
  Report Type: 
  Country: None (occurrence: None)
  Receive Date: 20090414
  Receipt Date: 20090410
  Transmission Date: 20091009
  Serious: Yes (Death, Hospitalization)
  Sender: FDA-Public Use
  Company Number: FR-B.I. PHARMACEUTICALS,INC./RIDGEFIELD-2009-FF-00185FF

PATIENT
  Sex: Male
  Weight: 78 kg

DRUGS (6)
  1. SPIRIVA [Suspect]
     Indication: CHRONIC OBSTRUCTIVE PULMONARY DISEASE
     Dosage: 18MCG
     Route: 055
     Dates: start: 20080315
  2. TAMSULOSINE [Concomitant]
     Indication: DYSURIA
  3. SOTALEX [Concomitant]
  4. COTRIATEC [Concomitant]
  5. VITABACT [Concomitant]
  6. DIAMICRON [Concomitant]

REACTIONS (5)
  - DYSURIA [None]
  - INCONTINENCE [None]
  - LUNG DISORDER [None]
  - POLLAKIURIA [None]
  - URINARY RETENTION [None]
